FAERS Safety Report 9236256 (Version 1)
Quarter: 2013Q2

REPORT INFORMATION
  Report Type: Spontaneous
  Country: GB (occurrence: GB)
  Receive Date: 20130417
  Receipt Date: 20130417
  Transmission Date: 20140414
  Serious: Yes (Hospitalization)
  Sender: FDA-Public Use
  Company Number: GB-PFIZER INC-2013115743

PATIENT
  Sex: Male

DRUGS (6)
  1. LINEZOLID [Suspect]
     Dosage: 600 MG, 2X/DAY
     Route: 048
     Dates: start: 20130320, end: 20130331
  2. CIPROFLOXACIN [Concomitant]
     Dosage: 500 MG, 2X/DAY
     Route: 048
     Dates: start: 20130322
  3. FRAGMIN [Concomitant]
     Indication: PROPHYLAXIS
     Dosage: 5000 IU UNIT DOSE (FREQUENCY UNKNOWN)
     Route: 058
  4. ASPIRIN [Concomitant]
     Dosage: 75 MG, 1X/DAY
     Route: 048
  5. DOXAZOSIN [Concomitant]
     Dosage: 4 MG, 1X/DAY
     Route: 048
  6. HUMALOG MIX 25 [Concomitant]
     Dosage: 1 DF, 2X/DAY
     Route: 058

REACTIONS (2)
  - Transient ischaemic attack [Unknown]
  - Loss of consciousness [Unknown]
